FAERS Safety Report 4589163-5 (Version None)
Quarter: 2005Q1

REPORT INFORMATION
  Report Type: 
  Country: None (occurrence: None)
  Receive Date: 20050215
  Receipt Date: 20050215
  Transmission Date: 20050727
  Serious: No
  Sender: FDA-Public Use
  Company Number: None

PATIENT
  Sex: Male
  Weight: 81.6475 kg

DRUGS (1)
  1. FLOMAX [Suspect]
     Dosage: 0.4 MG ONCE DAILY ORAL
     Route: 048

REACTIONS (3)
  - IRIS DISORDER [None]
  - MIOSIS [None]
  - PROCEDURAL COMPLICATION [None]
